FAERS Safety Report 18485248 (Version 1)
Quarter: 2020Q4

REPORT INFORMATION
  Report Type: Report from Study
  Country: FR (occurrence: FR)
  Receive Date: 20201110
  Receipt Date: 20201110
  Transmission Date: 20210114
  Serious: Yes (Hospitalization, Other)
  Sender: FDA-Public Use
  Company Number: FR-GLAXOSMITHKLINE-FR2020EME219258

PATIENT
  Age: 76 Year
  Sex: Female
  Weight: 51 kg

DRUGS (2)
  1. BELANTAMAB MAFODOTIN. [Suspect]
     Active Substance: BELANTAMAB MAFODOTIN
     Indication: PLASMA CELL MYELOMA
     Dosage: 2.5 MG/KG CYCLE 1
     Route: 042
     Dates: start: 20200907, end: 20200928
  2. BELANTAMAB MAFODOTIN. [Suspect]
     Active Substance: BELANTAMAB MAFODOTIN
     Dosage: 2.5 MG/KG CYCLE 2 (30 MIN DURATION)
     Route: 042
     Dates: start: 20200928

REACTIONS (3)
  - Disease progression [Not Recovered/Not Resolved]
  - Plasmacytoma [Not Recovered/Not Resolved]
  - Spinal cord infection [Not Recovered/Not Resolved]

NARRATIVE: CASE EVENT DATE: 20201019
